FAERS Safety Report 15448281 (Version 1)
Quarter: 2018Q3

REPORT INFORMATION
  Report Type: Spontaneous
  Country: US (occurrence: US)
  Receive Date: 20180926
  Receipt Date: 20180926
  Transmission Date: 20181010
  Serious: Yes (Other)
  Sender: FDA-Public Use
  Company Number: None

PATIENT
  Age: 84 Year
  Sex: Female
  Weight: 106.2 kg

DRUGS (21)
  1. REMICADE [Concomitant]
     Active Substance: INFLIXIMAB
  2. PEG [Concomitant]
     Active Substance: POLYETHYLENE GLYCOLS
  3. TEMOZOLOMIDE. [Suspect]
     Active Substance: TEMOZOLOMIDE
     Indication: BRAIN NEOPLASM
     Route: 048
     Dates: start: 20180911
  4. ATORVASTATIN [Concomitant]
     Active Substance: ATORVASTATIN
  5. NORCO [Concomitant]
     Active Substance: ACETAMINOPHEN\HYDROCODONE BITARTRATE
  6. CYANOCOBALAMIN. [Concomitant]
     Active Substance: CYANOCOBALAMIN
  7. PLAVIX [Concomitant]
     Active Substance: CLOPIDOGREL BISULFATE
  8. DOCUSATE [Concomitant]
     Active Substance: DOCUSATE
  9. PANTOPRAZOLE [Concomitant]
     Active Substance: PANTOPRAZOLE
  10. ARANESP [Concomitant]
     Active Substance: DARBEPOETIN ALFA
  11. DULERA [Concomitant]
     Active Substance: FORMOTEROL FUMARATE DIHYDRATE\MOMETASONE FUROATE
  12. AMLODIPINE [Concomitant]
     Active Substance: AMLODIPINE BESYLATE
  13. LAMOTRIGINE. [Concomitant]
     Active Substance: LAMOTRIGINE
  14. MAALOX ANTACID [Concomitant]
     Active Substance: ALUMINUM HYDROXIDE\DIMETHICONE\MAGNESIUM HYDROXIDE
  15. BISOPROLOL?HCTZ [Concomitant]
  16. DEXAMETHASONE. [Concomitant]
     Active Substance: DEXAMETHASONE
  17. HYDRALAZINE [Concomitant]
     Active Substance: HYDRALAZINE HYDROCHLORIDE
  18. OLANZAPINE. [Concomitant]
     Active Substance: OLANZAPINE
  19. MECLIZINE [Concomitant]
     Active Substance: MECLIZINE HYDROCHLORIDE
  20. HUMULIN NOS [Concomitant]
     Active Substance: INSULIN HUMAN
  21. HCTZ [Concomitant]
     Active Substance: HYDROCHLOROTHIAZIDE

REACTIONS (1)
  - Disease progression [None]
